FAERS Safety Report 23073393 (Version 1)
Quarter: 2023Q4

REPORT INFORMATION
  Report Type: Spontaneous
  Country: US (occurrence: US)
  Receive Date: 20231017
  Receipt Date: 20231017
  Transmission Date: 20240110
  Serious: Yes (Other)
  Sender: FDA-Public Use
  Company Number: US-HETERO-HET2023US02910

PATIENT
  Age: 52 Year
  Sex: Male

DRUGS (1)
  1. MOXIFLOXACIN [Suspect]
     Active Substance: MOXIFLOXACIN
     Indication: Antibiotic therapy
     Dosage: 400 MILLIGRAM, Q.D.
     Route: 048

REACTIONS (4)
  - Neuropsychological symptoms [Recovered/Resolved]
  - Toxicity to various agents [Recovered/Resolved]
  - Anxiety [Recovered/Resolved]
  - Confusional state [Recovered/Resolved]
